FAERS Safety Report 7475891-0 (Version None)
Quarter: 2011Q2

REPORT INFORMATION
  Report Type: 
  Country: None (occurrence: None)
  Receive Date: 20110512
  Receipt Date: 20110505
  Transmission Date: 20111010
  Serious: Yes (Hospitalization)
  Sender: FDA-Public Use
  Company Number: FR-B.I. PHARMACEUTICALS,INC./RIDGEFIELD-2011-FF-00449FF

PATIENT
  Sex: Female
  Weight: 112 kg

DRUGS (7)
  1. PRADAXA [Suspect]
     Indication: HIP ARTHROPLASTY
  2. DEPAKENE [Concomitant]
     Dosage: 1000 MG
     Route: 048
  3. PRADAXA [Suspect]
     Indication: PROPHYLAXIS
     Dosage: 150 MG
     Route: 048
     Dates: start: 20110405, end: 20110417
  4. PAROXETINE HCL [Concomitant]
     Dosage: 20 MG
     Route: 048
  5. IMOVANE [Concomitant]
  6. TEGRETOL [Suspect]
     Indication: EPILEPSY
     Dosage: 400 MG
     Route: 048
  7. PHENOBARBITAL TAB [Suspect]
     Indication: EPILEPSY
     Route: 048

REACTIONS (2)
  - DRUG INTERACTION [None]
  - PULMONARY EMBOLISM [None]
